FAERS Safety Report 22191202 (Version 1)
Quarter: 2023Q2

REPORT INFORMATION
  Report Type: Spontaneous
  Country: NL (occurrence: NL)
  Receive Date: 20230410
  Receipt Date: 20230410
  Transmission Date: 20230721
  Serious: Yes (Death)
  Sender: FDA-Public Use
  Company Number: None

PATIENT
  Sex: Female
  Weight: 74 kg

DRUGS (5)
  1. CISPLATIN [Suspect]
     Active Substance: CISPLATIN
     Indication: Transitional cell carcinoma
     Dosage: STRENGTH: 1 MG/ML, ACCORDING TO ONCOLOGIST SCHEDULE,
     Dates: start: 20230302, end: 20230308
  2. GEMCITABINE [Suspect]
     Active Substance: GEMCITABINE
     Indication: Transitional cell carcinoma
     Dosage: STRENGTH: 100 MG/ML, ACCORDING TO ONCOLOGIST SCHEDULE
     Dates: start: 20230302, end: 20230308
  3. ROSUVASTATIN [Concomitant]
     Active Substance: ROSUVASTATIN
     Dosage: STRENGTH: 5 MG
  4. INDAPAMIDE\PERINDOPRIL [Concomitant]
     Active Substance: INDAPAMIDE\PERINDOPRIL
     Dosage: STRENGTH: 4/1.25 MG
  5. POLYETHYLENE GLYCOLS [Concomitant]
     Active Substance: POLYETHYLENE GLYCOLS
     Dosage: POWDER FOR ORAL SOLUTION

REACTIONS (1)
  - Cerebrovascular accident [Fatal]
